FAERS Safety Report 6754006-8 (Version None)
Quarter: 2010Q2

REPORT INFORMATION
  Report Type: 
  Country: None (occurrence: None)
  Receive Date: 20100603
  Receipt Date: 20100526
  Transmission Date: 20101027
  Serious: Yes (Hospitalization)
  Sender: FDA-Public Use
  Company Number: B0657261A

PATIENT
  Sex: Female

DRUGS (5)
  1. ZELITREX [Suspect]
     Indication: BONE MARROW TRANSPLANT
     Dosage: 500MG TWICE PER DAY
     Route: 048
     Dates: start: 20090612
  2. AMOXICILLIN [Suspect]
     Indication: BONE MARROW TRANSPLANT
     Dosage: 2G PER DAY
     Route: 048
     Dates: start: 20090612
  3. NEORAL [Suspect]
     Indication: BONE MARROW TRANSPLANT
     Dosage: 100MG PER DAY
     Route: 050
     Dates: start: 20090612
  4. CELLCEPT [Suspect]
     Indication: BONE MARROW TRANSPLANT
     Dosage: 250MG TWICE PER DAY
     Route: 048
     Dates: start: 20090612
  5. CORTANCYL [Suspect]
     Indication: BONE MARROW TRANSPLANT
     Dosage: 5MG TWICE PER DAY
     Route: 048
     Dates: start: 20090612

REACTIONS (10)
  - ABDOMINAL PAIN [None]
  - ABDOMINAL PAIN UPPER [None]
  - BLOOD BILIRUBIN INCREASED [None]
  - CONSTIPATION [None]
  - GENERAL PHYSICAL HEALTH DETERIORATION [None]
  - HEPATIC ENZYME INCREASED [None]
  - HYPERTRIGLYCERIDAEMIA [None]
  - LIPASE INCREASED [None]
  - PANCREATITIS ACUTE [None]
  - VOMITING [None]
